FAERS Safety Report 9440973 (Version 1)
Quarter: 2013Q3

REPORT INFORMATION
  Report Type: Spontaneous
  Country: US (occurrence: None)
  Receive Date: 20130801
  Receipt Date: 20130801
  Transmission Date: 20140515
  Serious: Yes (Hospitalization)
  Sender: FDA-Public Use
  Company Number: JPI-P-029503

PATIENT
  Age: 49 Year
  Sex: Female

DRUGS (7)
  1. XYREM (500 MILLIGRAM/MILLILITERS, SOLUTION) (SODIUM OXYBATE) [Suspect]
     Indication: CATAPLEXY
     Route: 048
     Dates: start: 20060327
  2. AMLODIPINE/BENAZEPRIL [Concomitant]
  3. SPIRONOLACTONE [Concomitant]
  4. VENTOLIN (ALBUTEROL SULFATE) [Concomitant]
  5. COMBIVENT (ALBUTEROL SULFATE/IPRATROPIUM BROMIDE) [Concomitant]
  6. SPIRIVA (TIOTROPIUM BROMIDE) [Concomitant]
  7. SYMBICORT (BUDESONIDE/FORMOTEROL FUMARATE DIHYDRATE) [Concomitant]

REACTIONS (1)
  - Pneumonia [None]
